FAERS Safety Report 5816808-1 (Version None)
Quarter: 2008Q3

REPORT INFORMATION
  Report Type: 
  Country: None (occurrence: None)
  Receive Date: 20080721
  Receipt Date: 20080710
  Transmission Date: 20090109
  Serious: Yes (Congenital Anomaly)
  Sender: FDA-Public Use
  Company Number: FR-ELI_LILLY_AND_COMPANY-FR200807002218

PATIENT

DRUGS (3)
  1. PROZAC [Suspect]
     Indication: DEPRESSION
     Dosage: 20 MG, DAILY (1/D)
     Route: 064
     Dates: end: 20080708
  2. RIVOTRIL [Concomitant]
     Dosage: UNK, UNKNOWN
     Route: 064
     Dates: end: 20080708
  3. ATARAX [Concomitant]
     Dosage: UNK, UNKNOWN
     Route: 064
     Dates: end: 20080708

REACTIONS (2)
  - CRANIOSYNOSTOSIS [None]
  - DRUG EXPOSURE DURING PREGNANCY [None]
